FAERS Safety Report 6840711-1 (Version None)
Quarter: 2010Q2

REPORT INFORMATION
  Report Type: 
  Country: None (occurrence: None)
  Receive Date: 20100629
  Receipt Date: 20100525
  Transmission Date: 20101027
  Serious: No
  Sender: FDA-Public Use
  Company Number: US-WYE-H15445510

PATIENT

DRUGS (2)
  1. PRISTIQ [Suspect]
     Indication: DEPRESSION
     Dosage: CUTTING THE TABLET IN HALF PER PHYSICIAN, ORAL
     Route: 048
     Dates: start: 20100525
  2. TRAZODONE HCL [Concomitant]

REACTIONS (8)
  - ANXIETY [None]
  - DRUG ADMINISTRATION ERROR [None]
  - DRUG WITHDRAWAL SYNDROME [None]
  - ERYTHEMA [None]
  - INTENTIONAL DRUG MISUSE [None]
  - PANIC ATTACK [None]
  - PRURITUS [None]
  - URTICARIA [None]
